FAERS Safety Report 6234847-6 (Version None)
Quarter: 2009Q2

REPORT INFORMATION
  Report Type: 
  Country: None (occurrence: None)
  Receive Date: 20090618
  Receipt Date: 20090612
  Transmission Date: 20091009
  Serious: Yes (Other)
  Sender: FDA-Public Use
  Company Number: US-MERCK-0903USA04261

PATIENT
  Age: 83 Year
  Sex: Female

DRUGS (20)
  1. FOSAMAX [Suspect]
     Route: 048
     Dates: end: 20060801
  2. PRILOSEC [Concomitant]
     Route: 048
  3. LISINOPRIL [Concomitant]
     Route: 048
  4. CALCIUM CITRATE [Concomitant]
     Route: 065
  5. MAGNESIUM (UNSPECIFIED) [Concomitant]
     Route: 065
  6. LACTOBACILLUS ACIDOPHILUS [Concomitant]
     Route: 065
  7. OMEGA-3 MARINE TRIGLYCERIDES [Concomitant]
     Route: 065
  8. MONAVIE [Concomitant]
     Route: 065
  9. VITAMINS (UNSPECIFIED) [Concomitant]
     Route: 065
  10. LOVASTATIN [Concomitant]
     Route: 048
  11. SINGULAIR [Concomitant]
     Route: 048
  12. SPIRIVA [Concomitant]
     Route: 065
  13. ALBUTEROL [Concomitant]
     Route: 065
  14. NORTRIPTYLINE [Concomitant]
     Route: 065
  15. LORAZEPAM [Concomitant]
     Route: 065
  16. MIRALAX [Concomitant]
     Route: 065
  17. VIRAMID [Concomitant]
     Route: 065
  18. ASPIRIN [Concomitant]
     Route: 065
  19. ADVAIR HFA [Concomitant]
     Route: 065
  20. GARLIC [Concomitant]
     Route: 065

REACTIONS (10)
  - APHONIA [None]
  - BRONCHIAL DISORDER [None]
  - CAUSTIC INJURY [None]
  - CHOKING [None]
  - COUGH [None]
  - DYSPHAGIA [None]
  - DYSPHONIA [None]
  - FOREIGN BODY TRAUMA [None]
  - LARYNGEAL OEDEMA [None]
  - VOCAL CORD DISORDER [None]
